FAERS Safety Report 22706415 (Version 4)
Quarter: 2023Q4

REPORT INFORMATION
  Report Type: Spontaneous
  Country: US (occurrence: US)
  Receive Date: 20230714
  Receipt Date: 20231215
  Transmission Date: 20240109
  Serious: Yes (Other)
  Sender: FDA-Public Use
  Company Number: US-PFIZER INC-PV202300123329

PATIENT
  Age: 66 Year
  Sex: Male

DRUGS (1)
  1. TIKOSYN [Suspect]
     Active Substance: DOFETILIDE
     Dosage: 125 UG, 2X/DAY (TAKE 1 CAPSULE (125 MCG TOTAL) BY MOUTH 2 (TWO) TIMES DAILY)
     Route: 048

REACTIONS (1)
  - Cerebrovascular accident [Unknown]
